FAERS Safety Report 5085620-6 (Version None)
Quarter: 2006Q3

REPORT INFORMATION
  Report Type: 
  Country: None (occurrence: None)
  Receive Date: 20060822
  Receipt Date: 20060818
  Transmission Date: 20061208
  Serious: Yes (Hospitalization)
  Sender: FDA-Public Use
  Company Number: PHRM2006FR02335

PATIENT
  Age: 45 Year
  Sex: Female

DRUGS (5)
  1. SOLU-MEDROL [Suspect]
     Route: 040
  2. IMOVANE [Suspect]
     Route: 048
  3. SEROPRAM [Suspect]
     Route: 048
  4. REBIF [Suspect]
     Route: 058
  5. LIORESAL [Suspect]
     Route: 048

REACTIONS (10)
  - ABDOMINAL PAIN [None]
  - AGITATION NEONATAL [None]
  - APGAR SCORE LOW [None]
  - BRADYCARDIA NEONATAL [None]
  - CAESAREAN SECTION [None]
  - DRUG EXPOSURE DURING PREGNANCY [None]
  - FOETAL CARDIAC DISORDER [None]
  - FOETAL GROWTH RETARDATION [None]
  - OLIGOHYDRAMNIOS [None]
  - RETAINED PLACENTA OR MEMBRANES [None]
